FAERS Safety Report 7390304-5 (Version None)
Quarter: 2011Q2

REPORT INFORMATION
  Report Type: 
  Country: None (occurrence: None)
  Receive Date: 20110401
  Receipt Date: 20110323
  Transmission Date: 20111010
  Serious: Yes (Other)
  Sender: FDA-Public Use
  Company Number: US-GENZYME-MOZO-1000468

PATIENT
  Sex: Female

DRUGS (4)
  1. SORAFENIB [Suspect]
     Indication: MYELOID LEUKAEMIA
     Dosage: 600 MG, BID
     Route: 048
  2. NEUPOGEN [Suspect]
     Indication: MYELOID LEUKAEMIA
     Dosage: 10 MCG/KG, QOD
     Route: 058
  3. ANTIBIOTICS [Concomitant]
     Indication: PRODUCT USED FOR UNKNOWN INDICATION
     Route: 065
  4. MOZOBIL [Suspect]
     Indication: MYELOID LEUKAEMIA
     Dosage: 240 MCG/KG, QOD
     Route: 058

REACTIONS (4)
  - SEPTIC EMBOLUS [None]
  - CARDIAC VALVE VEGETATION [None]
  - LEUKOCYTOSIS [None]
  - BLINDNESS UNILATERAL [None]
